FAERS Safety Report 13420447 (Version 1)
Quarter: 2017Q2

REPORT INFORMATION
  Report Type: Spontaneous
  Country: CN (occurrence: CN)
  Receive Date: 20170407
  Receipt Date: 20170407
  Transmission Date: 20170830
  Serious: Yes (Death)
  Sender: FDA-Public Use
  Company Number: CN-CELGENEUS-CHN-2017038382

PATIENT

DRUGS (3)
  1. BEVACIZUMAB [Suspect]
     Active Substance: BEVACIZUMAB
     Indication: TRANSITIONAL CELL CARCINOMA
     Dosage: 5 MG/KG
     Route: 065
  2. ABRAXANE [Suspect]
     Active Substance: PACLITAXEL
     Indication: TRANSITIONAL CELL CARCINOMA
     Dosage: 260 MG/M2
     Route: 041
  3. ENDOSTATIN [Suspect]
     Active Substance: ENDOSTATIN
     Indication: TRANSITIONAL CELL CARCINOMA
     Dosage: 15 MG
     Route: 065

REACTIONS (7)
  - Fatigue [Unknown]
  - Alopecia [Unknown]
  - Leukopenia [Unknown]
  - Hypertension [Unknown]
  - Transitional cell carcinoma [Fatal]
  - Proteinuria [Unknown]
  - Nausea [Unknown]
